FAERS Safety Report 6100092-8 (Version None)
Quarter: 2009Q1

REPORT INFORMATION
  Report Type: 
  Country: None (occurrence: None)
  Receive Date: 20090303
  Receipt Date: 20090226
  Transmission Date: 20090719
  Serious: Yes (Death, Life-Threatening, Other)
  Sender: FDA-Public Use
  Company Number: PHHY2009DE07250

PATIENT
  Sex: Female

DRUGS (19)
  1. TEGRETOL [Interacting]
     Dosage: 400-900 MG/DAY
     Route: 048
     Dates: start: 20081021, end: 20081027
  2. TEGRETOL [Interacting]
     Dosage: 600MG/D
     Route: 048
     Dates: start: 20081028, end: 20081028
  3. TEGRETOL [Interacting]
     Dosage: 1000MG/D
     Route: 048
     Dates: start: 20081029, end: 20081110
  4. DIAZEPAM [Interacting]
     Dosage: 20MG/D
     Route: 048
     Dates: start: 20081021, end: 20081021
  5. DIAZEPAM [Interacting]
     Dosage: 35MG/D
     Route: 048
     Dates: start: 20081022, end: 20081022
  6. DIAZEPAM [Interacting]
     Dosage: 30MG/D
     Route: 048
     Dates: start: 20081022, end: 20081025
  7. DIAZEPAM [Interacting]
     Dosage: 17.5MG/D
     Route: 048
     Dates: start: 20081027, end: 20081027
  8. DIAZEPAM [Interacting]
     Dosage: 10MG/D
     Route: 048
     Dates: start: 20081028, end: 20081028
  9. DIAZEPAM [Interacting]
     Dosage: 17.5MG/D
     Route: 048
     Dates: start: 20081029, end: 20081030
  10. DIAZEPAM [Interacting]
     Dosage: 22.5MG/D
     Route: 048
     Dates: start: 20081031, end: 20081101
  11. DIAZEPAM [Interacting]
     Dosage: 17.5MG/D
     Route: 048
     Dates: start: 20081102, end: 20081103
  12. DIAZEPAM [Interacting]
     Dosage: 15MG/D
     Route: 048
     Dates: start: 20081104, end: 20081110
  13. SEROQUEL [Suspect]
     Dosage: 50MG/D
     Route: 048
     Dates: start: 20081104, end: 20081105
  14. SEROQUEL [Suspect]
     Dosage: 100MG/D
     Route: 048
     Dates: start: 20081106, end: 20081110
  15. ISOPTIN [Interacting]
     Dosage: 180MG/D
     Route: 048
     Dates: end: 20081110
  16. CIPROFLOXACIN HCL [Interacting]
     Dosage: 400MG/D
     Route: 048
     Dates: start: 20081107, end: 20081108
  17. CIPROFLOXACIN HCL [Interacting]
     Dosage: UNK
     Route: 048
     Dates: start: 20081109, end: 20081110
  18. SPIRIVA [Concomitant]
     Dosage: UNK
  19. NOVALGIN [Concomitant]
     Dosage: 750MG/D
     Route: 048
     Dates: start: 20081108, end: 20081109

REACTIONS (31)
  - ALANINE AMINOTRANSFERASE INCREASED [None]
  - ASPARTATE AMINOTRANSFERASE INCREASED [None]
  - BACTERIA URINE [None]
  - BLOOD ALKALINE PHOSPHATASE INCREASED [None]
  - BLOOD CALCIUM DECREASED [None]
  - BLOOD CREATININE DECREASED [None]
  - BLOOD FOLATE INCREASED [None]
  - BLOOD GLUCOSE INCREASED [None]
  - BLOOD UREA INCREASED [None]
  - BRONCHITIS [None]
  - C-REACTIVE PROTEIN INCREASED [None]
  - CARDIAC ARREST [None]
  - CONDITION AGGRAVATED [None]
  - DRUG INTERACTION [None]
  - GAMMA-GLUTAMYLTRANSFERASE INCREASED [None]
  - HAEMATOCRIT DECREASED [None]
  - HAEMOGLOBIN DECREASED [None]
  - HEADACHE [None]
  - INFECTION [None]
  - INTERNATIONAL NORMALISED RATIO [None]
  - LIVER FUNCTION TEST ABNORMAL [None]
  - MONOCYTE COUNT INCREASED [None]
  - NEUTROPHIL COUNT INCREASED [None]
  - PROTHROMBIN TIME PROLONGED [None]
  - PYREXIA [None]
  - RED BLOOD CELL COUNT DECREASED [None]
  - RESPIRATORY FAILURE [None]
  - RESUSCITATION [None]
  - URINARY TRACT INFECTION [None]
  - VITAMIN B12 INCREASED [None]
  - WHITE BLOOD CELLS URINE POSITIVE [None]
